FAERS Safety Report 11592664 (Version 1)
Quarter: 2015Q4

REPORT INFORMATION
  Report Type: Spontaneous
  Country: US (occurrence: None)
  Receive Date: 20151002
  Receipt Date: 20151002
  Transmission Date: 20160304
  Serious: Yes (Disabling, Other)
  Sender: FDA-Public Use
  Company Number: None

PATIENT
  Age: 36 Year
  Sex: Female
  Weight: 97.07 kg

DRUGS (2)
  1. TYLENOL [Concomitant]
     Active Substance: ACETAMINOPHEN
  2. LIALDA [Suspect]
     Active Substance: MESALAMINE
     Indication: COLITIS ULCERATIVE
     Route: 048
     Dates: start: 20150820, end: 20151001

REACTIONS (7)
  - Condition aggravated [None]
  - Chest pain [None]
  - Abdominal pain upper [None]
  - Headache [None]
  - Impaired work ability [None]
  - Flatulence [None]
  - Dizziness [None]

NARRATIVE: CASE EVENT DATE: 20151001
